FAERS Safety Report 7460083-1 (Version None)
Quarter: 2011Q2

REPORT INFORMATION
  Report Type: 
  Country: None (occurrence: None)
  Receive Date: 20110505
  Receipt Date: 20110422
  Transmission Date: 20111010
  Serious: Yes (Hospitalization, Other)
  Sender: FDA-Public Use
  Company Number: PHHY2011JP31605

PATIENT
  Age: 47 Year
  Sex: Male

DRUGS (15)
  1. LUVOX [Concomitant]
     Indication: DEPRESSION
     Dosage: 25 MG, QID
     Route: 048
  2. ETIZOLAM [Concomitant]
     Indication: DEPRESSION
     Dosage: 1 MG, BID
     Route: 048
  3. ETHYL LOFLAZEPATE [Concomitant]
     Indication: DEPRESSION
     Dosage: 2 MG, BID
     Route: 048
  4. RITALIN [Suspect]
     Indication: DEPRESSION
     Dosage: 10 MG, BID
     Route: 048
     Dates: start: 19940501, end: 19940901
  5. RITALIN [Suspect]
     Dosage: 10 MG, TID
     Route: 048
     Dates: start: 19940901, end: 20050201
  6. LUDIOMIL [Suspect]
     Indication: DEPRESSION
     Dosage: 25 MG, TID
     Route: 048
  7. SEDIEL [Concomitant]
     Indication: DEPRESSION
     Dosage: 10 MG, 6QD
     Route: 048
  8. ARTANE [Concomitant]
     Indication: DEPRESSION
     Dosage: 2 MG, QID
     Route: 048
  9. AMOXAN [Concomitant]
     Indication: DEPRESSION
     Dosage: 25 MG, 8QD
     Route: 048
  10. CALSMIN [Concomitant]
     Indication: DEPRESSION
     Dosage: 10 MG, QD
     Route: 048
  11. CLOTIAZEPAM [Concomitant]
     Indication: DEPRESSION
     Dosage: 5 MG, BID
     Route: 048
  12. SENIRAN [Concomitant]
     Indication: DEPRESSION
     Dosage: 5 MG, QID
     Route: 048
  13. MYSLEE [Concomitant]
     Indication: DEPRESSION
     Dosage: 5 MG, QD
     Route: 048
  14. VALPROATE SODIUM [Concomitant]
     Indication: DEPRESSION
     Dosage: 200 MG, TID
     Route: 048
  15. ABILIT [Concomitant]
     Indication: DEPRESSION
     Dosage: 100 MG, TID
     Route: 048

REACTIONS (12)
  - FEELING ABNORMAL [None]
  - BLOOD CHOLESTEROL INCREASED [None]
  - TOXICITY TO VARIOUS AGENTS [None]
  - BLOOD URIC ACID INCREASED [None]
  - HEPATIC FUNCTION ABNORMAL [None]
  - DECREASED APPETITE [None]
  - MIGRAINE [None]
  - INTENTIONAL OVERDOSE [None]
  - ALCOHOL ABUSE [None]
  - DRUG DEPENDENCE [None]
  - MENINGIOMA [None]
  - BLOOD TRIGLYCERIDES INCREASED [None]
